FAERS Safety Report 12757701 (Version 9)
Quarter: 2017Q2

REPORT INFORMATION
  Report Type: Spontaneous
  Country: JP (occurrence: JP)
  Receive Date: 20160919
  Receipt Date: 20170626
  Transmission Date: 20170830
  Serious: Yes (Hospitalization, Other)
  Sender: FDA-Public Use
  Company Number: PHJP2016JP025594

PATIENT
  Age: 76 Year
  Sex: Male
  Weight: 65 kg

DRUGS (8)
  1. COSENTYX [Suspect]
     Active Substance: SECUKINUMAB
     Indication: PSORIASIS
     Dosage: 300 MG, UNK
     Route: 058
     Dates: start: 20160701
  2. DOVONEX [Concomitant]
     Active Substance: CALCIPOTRIENE
     Indication: PSORIASIS
     Dosage: 5 G, UNK
     Route: 061
     Dates: start: 20160419, end: 20160816
  3. WHITE PETROLATUM [Concomitant]
     Active Substance: PETROLATUM
     Indication: PSORIASIS
     Dosage: 10 MG, UNK
     Route: 061
     Dates: start: 20160412
  4. COSENTYX [Suspect]
     Active Substance: SECUKINUMAB
     Dosage: 300 MG, UNK
     Route: 058
     Dates: start: 20160715
  5. COSENTYX [Suspect]
     Active Substance: SECUKINUMAB
     Dosage: 300 MG, UNK
     Route: 058
     Dates: start: 20160708
  6. AKINETON [Suspect]
     Active Substance: BIPERIDEN HYDROCHLORIDE
     Indication: SCHIZOPHRENIA
     Route: 048
  7. DERMOVATE [Concomitant]
     Active Substance: CLOBETASOL
     Indication: PSORIASIS
     Dosage: 5 G, UNK
     Route: 061
     Dates: start: 20160412, end: 20160816
  8. SERENACE [Suspect]
     Active Substance: HALOPERIDOL
     Indication: SCHIZOPHRENIA
     Dosage: UNK
     Route: 048

REACTIONS (19)
  - Pain [Unknown]
  - Decubitus ulcer [Unknown]
  - Peripheral swelling [Unknown]
  - Ileus paralytic [Recovered/Resolved]
  - Constipation [Unknown]
  - Abdominal pain [Unknown]
  - Erythema [Unknown]
  - Deep vein thrombosis [Recovering/Resolving]
  - Eczema asteatotic [Unknown]
  - Pyrexia [Unknown]
  - Dermatitis [Recovered/Resolved]
  - Eczema [Unknown]
  - Pruritus [Unknown]
  - Abdominal distension [Unknown]
  - Hypotension [Recovered/Resolved]
  - Pelvic abscess [Recovered/Resolved]
  - Pyrexia [Recovered/Resolved]
  - Skin exfoliation [Unknown]
  - Cellulitis [Recovered/Resolved]

NARRATIVE: CASE EVENT DATE: 20160716
